FAERS Safety Report 7760365-X (Version None)
Quarter: 2011Q3

REPORT INFORMATION
  Report Type: 
  Country: None (occurrence: None)
  Receive Date: 20110919
  Receipt Date: 20110909
  Transmission Date: 20111222
  Serious: Yes (Other)
  Sender: FDA-Public Use
  Company Number: PHFR2011GB02261

PATIENT
  Sex: Male

DRUGS (3)
  1. CLOZAPINE [Suspect]
     Indication: SCHIZOPHRENIA
     Dosage: 350 MG, NOCTE
     Route: 048
     Dates: start: 20050203
  2. PAROXETINE HCL [Concomitant]
     Route: 048
  3. VALPROIC ACID [Concomitant]
     Route: 048

REACTIONS (5)
  - MUSCULAR WEAKNESS [None]
  - MUSCLE TWITCHING [None]
  - PALPITATIONS [None]
  - ANTIPSYCHOTIC DRUG LEVEL INCREASED [None]
  - SOMNOLENCE [None]
